FAERS Safety Report 11618574 (Version 1)
Quarter: 2015Q4

REPORT INFORMATION
  Report Type: Spontaneous
  Country: MY (occurrence: MY)
  Receive Date: 20151012
  Receipt Date: 20151012
  Transmission Date: 20160304
  Serious: Yes (Other)
  Sender: FDA-Public Use
  Company Number: MY-HOSPIRA-3030441

PATIENT
  Age: 40 Year
  Sex: Male

DRUGS (1)
  1. PETHIDINE HYDROCHLORIDE [Suspect]
     Active Substance: MEPERIDINE
     Indication: PAIN
     Route: 042

REACTIONS (6)
  - Brain injury [Unknown]
  - Drug abuse [Unknown]
  - Drug dependence [Recovering/Resolving]
  - Drug withdrawal convulsions [Unknown]
  - Cognitive disorder [Unknown]
  - Overdose [Unknown]
